FAERS Safety Report 19070171 (Version 1)
Quarter: 2021Q1

REPORT INFORMATION
  Report Type: Report from Study
  Country: US (occurrence: US)
  Receive Date: 20210329
  Receipt Date: 20210329
  Transmission Date: 20210420
  Serious: No
  Sender: FDA-Public Use
  Company Number: NVSC2021US068925

PATIENT
  Sex: Male

DRUGS (2)
  1. WATER PILLS [Suspect]
     Active Substance: UNSPECIFIED INGREDIENT
     Indication: PRODUCT USED FOR UNKNOWN INDICATION
     Dosage: UNK UNK, UNKNOWN
     Route: 065
  2. ENTRESTO [Suspect]
     Active Substance: SACUBITRIL\VALSARTAN
     Indication: PRODUCT USED FOR UNKNOWN INDICATION
     Dosage: 100 MG (49/51 MG), BID
     Route: 048

REACTIONS (1)
  - Blood pressure decreased [Unknown]
